FAERS Safety Report 21192577 (Version 3)
Quarter: 2023Q2

REPORT INFORMATION
  Report Type: Spontaneous
  Country: ES (occurrence: ES)
  Receive Date: 20220809
  Receipt Date: 20230502
  Transmission Date: 20230722
  Serious: Yes (Death, Other)
  Sender: FDA-Public Use
  Company Number: ES-ABBVIE-21K-144-4148068-00

PATIENT
  Age: 47 Year
  Sex: Female
  Weight: 127 kg

DRUGS (18)
  1. ADALIMUMAB [Suspect]
     Active Substance: ADALIMUMAB
     Indication: Rheumatoid arthritis
     Dosage: UNKNOWN, 2906A
     Route: 058
     Dates: start: 2019
  2. ADALIMUMAB [Suspect]
     Active Substance: ADALIMUMAB
     Dosage: UNKNOWN, 2906A
     Route: 058
     Dates: start: 2021, end: 2021
  3. ETANERCEPT [Suspect]
     Active Substance: ETANERCEPT
     Indication: Product used for unknown indication
     Dosage: UNKNOWN
     Route: 065
  4. ARCOXIA [Suspect]
     Active Substance: ETORICOXIB
     Indication: Rheumatoid arthritis
     Dosage: 1 TABLET AT DINNER(TIME), 60 MG FILM-COATED TABLET , 28 TABLETS
     Route: 048
     Dates: start: 2019, end: 20211024
  5. RINVOQ [Suspect]
     Active Substance: UPADACITINIB
     Indication: Rheumatoid arthritis
     Dosage: 15MG/DAY; 15 MG EXTENDED-RELEASE TABLETS, 28 TABLETS
     Route: 048
     Dates: start: 20211020, end: 20211024
  6. METHOTREXATE [Suspect]
     Active Substance: METHOTREXATE
     Indication: Rheumatoid arthritis
     Dosage: 2.5 MG: 0-2-2, SUNDAY, 418A
     Route: 065
     Dates: start: 2019, end: 20211024
  7. LEFLUNOMIDE [Suspect]
     Active Substance: LEFLUNOMIDE
     Indication: Diarrhoea
     Dosage: UNKNOWN
     Route: 065
  8. BARICITINIB [Suspect]
     Active Substance: BARICITINIB
     Indication: Rheumatoid arthritis
     Dosage: UNKNOWN,9318A
     Route: 065
     Dates: start: 20210330, end: 20211001
  9. BARICITINIB [Suspect]
     Active Substance: BARICITINIB
     Dosage: UNKNOWN
     Route: 065
     Dates: start: 20201116
  10. ETORICOXIB [Suspect]
     Active Substance: ETORICOXIB
     Indication: Product used for unknown indication
     Dosage: 1 TABLET AT DINNER TIME
     Route: 065
  11. ACETAMINOPHEN [Concomitant]
     Active Substance: ACETAMINOPHEN
     Indication: Product used for unknown indication
     Dosage: UNKNOWN, 12A
     Route: 065
  12. URBASON DEPOT [Concomitant]
     Indication: Condition aggravated
     Dosage: URBASON 16, UNKNOWN
     Route: 065
  13. PREDNISONA [PREDNISOLONE] [Concomitant]
     Indication: Product used for unknown indication
     Dosage: UNKNOWN, 886A
     Route: 065
  14. GABAPENTIN [Concomitant]
     Active Substance: GABAPENTIN
     Indication: Product used for unknown indication
     Dosage: UNKNOWN, 2641A
     Route: 065
  15. FERROUS GLUCONATE [Concomitant]
     Active Substance: FERROUS GLUCONATE
     Indication: Product used for unknown indication
     Dosage: UNKNOWN
     Route: 065
  16. NOLOTIL COMPOSITUM [Concomitant]
     Indication: Product used for unknown indication
     Dosage: UNKNOWN
     Route: 065
  17. OMEPRAZOLE [Concomitant]
     Active Substance: OMEPRAZOLE
     Indication: Product used for unknown indication
     Dosage: UNKNOWN, 2141A
     Route: 065
  18. FOLIC ACID [Concomitant]
     Active Substance: FOLIC ACID
     Indication: Product used for unknown indication
     Dosage: UNKNOWN
     Route: 065

REACTIONS (2)
  - Cardio-respiratory arrest [Fatal]
  - Sudden death [Fatal]

NARRATIVE: CASE EVENT DATE: 20211024
